FAERS Safety Report 9478486 (Version 4)
Quarter: 2014Q4

REPORT INFORMATION
  Report Type: Spontaneous
  Country: US (occurrence: None)
  Receive Date: 20130822
  Receipt Date: 20141219
  Transmission Date: 20150529
  Serious: Yes (Death)
  Sender: FDA-Public Use
  Company Number: 1713747-2013-99935

PATIENT
  Age: 82 Year
  Sex: Male
  Weight: 61.5 kg

DRUGS (14)
  1. BABY ASPIRIN [Concomitant]
     Active Substance: ASPIRIN
  2. NORVASC AMLODIPINE [Concomitant]
  3. TUMS [Concomitant]
     Active Substance: CALCIUM CARBONATE
  4. POTASSIUM CHLORIDE. [Concomitant]
     Active Substance: POTASSIUM CHLORIDE
  5. CALICTROL [Concomitant]
  6. METOPROLOL [Concomitant]
     Active Substance: METOPROLOL
  7. HEPARIN [Concomitant]
     Active Substance: HEPARIN SODIUM
  8. LIBERTY CYCLER [Concomitant]
  9. MEGACE [Concomitant]
     Active Substance: MEGESTROL ACETATE
  10. GENTAMICIN CREAM [Concomitant]
  11. NOVOLIN [Concomitant]
     Active Substance: INSULIN HUMAN
  12. DELFLEX [Suspect]
     Active Substance: CALCIUM CHLORIDE\DEXTROSE MONOHYDRATE\MAGNESIUM CHLORIDE\SODIUM CHLORIDE\SODIUM LACTATE
     Indication: CHRONIC KIDNEY DISEASE
     Dates: start: 20130807
  13. LIBERTY CYCLER TUBING [Concomitant]
  14. PRAVASTATIN [Concomitant]
     Active Substance: PRAVASTATIN\PRAVASTATIN SODIUM

REACTIONS (2)
  - Cardiac arrest [None]
  - Peritoneal dialysis [None]

NARRATIVE: CASE EVENT DATE: 20130807
